FAERS Safety Report 6599948-1 (Version None)
Quarter: 2010Q1

REPORT INFORMATION
  Report Type: 
  Country: None (occurrence: None)
  Receive Date: 20100217
  Receipt Date: 20100212
  Transmission Date: 20100710
  Serious: No
  Sender: FDA-Public Use
  Company Number: 1000011487

PATIENT
  Age: 77 Year
  Sex: Female

DRUGS (10)
  1. NAMENDA [Suspect]
     Indication: DEMENTIA ALZHEIMER'S TYPE
     Dosage: 5 MG (5 MG, 1 IN 1 D), ORAL, 10 MG (5 MG, 2 IN 1 D), ORAL, 15 MG (2 IN 1 D), ORAL, 20 MG (10 MG, 2 I
     Route: 048
     Dates: start: 20040325, end: 20040331
  2. NAMENDA [Suspect]
     Indication: DEMENTIA ALZHEIMER'S TYPE
     Dosage: 5 MG (5 MG, 1 IN 1 D), ORAL, 10 MG (5 MG, 2 IN 1 D), ORAL, 15 MG (2 IN 1 D), ORAL, 20 MG (10 MG, 2 I
     Route: 048
     Dates: start: 20040401, end: 20040407
  3. NAMENDA [Suspect]
     Indication: DEMENTIA ALZHEIMER'S TYPE
     Dosage: 5 MG (5 MG, 1 IN 1 D), ORAL, 10 MG (5 MG, 2 IN 1 D), ORAL, 15 MG (2 IN 1 D), ORAL, 20 MG (10 MG, 2 I
     Route: 048
     Dates: start: 20040408, end: 20040414
  4. NAMENDA [Suspect]
     Indication: DEMENTIA ALZHEIMER'S TYPE
     Dosage: 5 MG (5 MG, 1 IN 1 D), ORAL, 10 MG (5 MG, 2 IN 1 D), ORAL, 15 MG (2 IN 1 D), ORAL, 20 MG (10 MG, 2 I
     Route: 048
     Dates: start: 20040415
  5. ARICEPT [Concomitant]
  6. SIMVASTATIN [Concomitant]
  7. PROZAC [Concomitant]
  8. ULTRAM [Concomitant]
  9. ALTACE [Concomitant]
  10. XALATAN [Concomitant]

REACTIONS (5)
  - ABDOMINAL PAIN [None]
  - ARTHRITIS [None]
  - CHOLECYSTITIS [None]
  - ENDOMETRIAL DISORDER [None]
  - MASS [None]
